FAERS Safety Report 21935263 (Version 2)
Quarter: 2023Q1

REPORT INFORMATION
  Report Type: Spontaneous
  Country: CO (occurrence: CO)
  Receive Date: 20230201
  Receipt Date: 20230301
  Transmission Date: 20230417
  Serious: No
  Sender: FDA-Public Use
  Company Number: CO-PFIZER INC-PV202300015296

PATIENT

DRUGS (1)
  1. GENOTROPIN [Suspect]
     Active Substance: SOMATROPIN
     Dosage: UNK
     Route: 058
     Dates: start: 202210

REACTIONS (1)
  - Wrong technique in device usage process [Unknown]

NARRATIVE: CASE EVENT DATE: 20221001
